FAERS Safety Report 11229038 (Version 3)
Quarter: 2015Q3

REPORT INFORMATION
  Report Type: Spontaneous
  Country: US (occurrence: US)
  Receive Date: 20150630
  Receipt Date: 20150901
  Transmission Date: 20151125
  Serious: No
  Sender: FDA-Public Use
  Company Number: US-PFIZER INC-2015213061

PATIENT
  Age: 63 Year
  Sex: Male

DRUGS (3)
  1. ASPIRIN. [Concomitant]
     Active Substance: ASPIRIN
     Indication: CARDIOVASCULAR DISORDER
     Dosage: 81 MG, 1X/DAY
     Route: 048
  2. SUTENT [Suspect]
     Active Substance: SUNITINIB MALATE
     Indication: RENAL CELL CARCINOMA
     Dosage: 50 MG, CYCLIC (4 WKS ON, 2 WKS OFF)
     Route: 048
     Dates: start: 20150603
  3. SUTENT [Suspect]
     Active Substance: SUNITINIB MALATE
     Dosage: 50 MG, CYCLIC (1 WEEKS OFF IN 2 WEEKS)
     Dates: start: 20150603

REACTIONS (8)
  - Oral pain [Unknown]
  - Epistaxis [Unknown]
  - Dyspepsia [Recovered/Resolved]
  - Mucosal inflammation [Recovering/Resolving]
  - Blood calcium increased [Unknown]
  - Contusion [Unknown]
  - Abdominal discomfort [Unknown]
  - Diarrhoea [Recovered/Resolved]

NARRATIVE: CASE EVENT DATE: 2015
